FAERS Safety Report 15677609 (Version 1)
Quarter: 2018Q4

REPORT INFORMATION
  Report Type: Other
  Country: US (occurrence: US)
  Receive Date: 20181130
  Receipt Date: 20181130
  Transmission Date: 20190205
  Serious: Yes (Death, Life-Threatening, Hospitalization)
  Sender: FDA-Public Use
  Company Number: US-C B FLEET CO INC-201811-US-002802

PATIENT
  Age: 22 Year
  Sex: Female

DRUGS (1)
  1. DIPHENHYDRAMINE HCL [Suspect]
     Active Substance: DIPHENHYDRAMINE HYDROCHLORIDE
     Indication: PRODUCT USED FOR UNKNOWN INDICATION
     Dosage: INGESTED 200 25 - MILLIGRAM TABLETS
     Route: 048

REACTIONS (11)
  - Drug screen positive [Unknown]
  - Electrocardiogram QRS complex prolonged [Unknown]
  - Acidosis [Recovered/Resolved]
  - Inappropriate schedule of product administration [None]
  - Hypoaesthesia [Unknown]
  - Lactic acidosis [Unknown]
  - Hypoaesthesia oral [Unknown]
  - Seizure [Unknown]
  - Foetal death [Fatal]
  - Tachycardia [Unknown]
  - Product use in unapproved indication [None]
